FAERS Safety Report 6900024-6 (Version None)
Quarter: 2010Q3

REPORT INFORMATION
  Report Type: 
  Country: None (occurrence: None)
  Receive Date: 20100803
  Receipt Date: 20100721
  Transmission Date: 20110219
  Serious: Yes (Other)
  Sender: FDA-Public Use
  Company Number: FR-JNJFOC-20100706937

PATIENT
  Age: 40 Year
  Sex: Male

DRUGS (3)
  1. INFLIXIMAB, RECOMBINANT [Suspect]
     Indication: ANKYLOSING SPONDYLITIS
     Dosage: TOTAL OF 12 INFUSIONS OVER 18 MONTHS
     Route: 042
  2. ETANERCEPT [Suspect]
     Indication: ANKYLOSING SPONDYLITIS
     Dosage: 7 MONTHS
  3. ADALIMUMAB [Suspect]
     Indication: ANKYLOSING SPONDYLITIS
     Dosage: FOR 1 MONTH

REACTIONS (2)
  - MENINGITIS [None]
  - WHIPPLE'S DISEASE [None]
